FAERS Safety Report 12829994 (Version 1)
Quarter: 2016Q4

REPORT INFORMATION
  Report Type: Spontaneous
  Country: US (occurrence: US)
  Receive Date: 20161007
  Receipt Date: 20161007
  Transmission Date: 20170207
  Serious: Yes (Other)
  Sender: FDA-Public Use
  Company Number: US-SA-2016SA138514

PATIENT
  Age: 56 Year
  Sex: Female

DRUGS (12)
  1. NUBAIN [Concomitant]
     Active Substance: NALBUPHINE HYDROCHLORIDE
  2. ULTRAM [Concomitant]
     Active Substance: TRAMADOL HYDROCHLORIDE
  3. ERYTHROMYCIN. [Concomitant]
     Active Substance: ERYTHROMYCIN
  4. FLAGYL [Concomitant]
     Active Substance: METRONIDAZOLE\METRONIDAZOLE HYDROCHLORIDE
  5. NUTROPIN [Concomitant]
     Active Substance: SOMATROPIN
  6. PHENERGAN [Concomitant]
     Active Substance: PROMETHAZINE HYDROCHLORIDE
  7. COPAXONE [Concomitant]
     Active Substance: GLATIRAMER ACETATE
  8. AUBAGIO [Suspect]
     Active Substance: TERIFLUNOMIDE
     Indication: MULTIPLE SCLEROSIS
     Route: 048
     Dates: start: 20150115
  9. VISTARIL [Concomitant]
     Active Substance: HYDROXYZINE PAMOATE
  10. TORADOL [Concomitant]
     Active Substance: KETOROLAC TROMETHAMINE
  11. LYRICA [Concomitant]
     Active Substance: PREGABALIN
  12. REGLAN [Concomitant]
     Active Substance: METOCLOPRAMIDE HYDROCHLORIDE

REACTIONS (2)
  - Multiple sclerosis relapse [Not Recovered/Not Resolved]
  - Drug dose omission [Unknown]

NARRATIVE: CASE EVENT DATE: 20160720
